FAERS Safety Report 9246935 (Version 1)
Quarter: 2013Q2

REPORT INFORMATION
  Report Type: Report from Study
  Country: US (occurrence: US)
  Receive Date: 20130422
  Receipt Date: 20130422
  Transmission Date: 20140414
  Serious: No
  Sender: FDA-Public Use
  Company Number: US-ABBOTT-13P-163-1067803-00

PATIENT
  Sex: Male
  Weight: 61.29 kg

DRUGS (1)
  1. LUPRON (PEDIATRIC) [Suspect]
     Indication: TRANSGENDER HORMONAL THERAPY

REACTIONS (1)
  - Off label use [Unknown]
